FAERS Safety Report 4947301-6 (Version None)
Quarter: 2006Q1

REPORT INFORMATION
  Report Type: 
  Country: None (occurrence: None)
  Receive Date: 20060313
  Receipt Date: 20060228
  Transmission Date: 20060701
  Serious: Yes (Other)
  Sender: FDA-Public Use
  Company Number: HQWYE936816AUG05

PATIENT
  Age: 50 Year
  Sex: Female
  Weight: 49.94 kg

DRUGS (2)
  1. PREMARIN [Suspect]
  2. PROVERA [Suspect]

REACTIONS (4)
  - ANXIETY [None]
  - BREAST CANCER METASTATIC [None]
  - DEPRESSION [None]
  - METASTASES TO LYMPH NODES [None]
